FAERS Safety Report 17978131 (Version 1)
Quarter: 2020Q3

REPORT INFORMATION
  Report Type: Spontaneous
  Country: CA (occurrence: CA)
  Receive Date: 20200703
  Receipt Date: 20200703
  Transmission Date: 20201103
  Serious: Yes (Other)
  Sender: FDA-Public Use
  Company Number: CA-ACCORD-187946

PATIENT
  Age: 66 Year
  Sex: Female

DRUGS (14)
  1. METHOTREXATE. [Suspect]
     Active Substance: METHOTREXATE
     Indication: PRODUCT USED FOR UNKNOWN INDICATION
     Dosage: 1 EVERY 1 WEEKS
     Route: 050
  2. CYANOCOBALAMIN/CYANOCOBALAMIN ZINC TANNATE/CYANOCOBALAMIN?TANNIN COMPLEX [Concomitant]
     Active Substance: CYANOCOBALAMIN
  3. PREDNISONE. [Concomitant]
     Active Substance: PREDNISONE
     Dosage: 1 EVERY 1 DAYS
     Route: 048
  4. MORPHINE [Concomitant]
     Active Substance: MORPHINE
  5. BUPIVACAINE. [Concomitant]
     Active Substance: BUPIVACAINE
     Dosage: 2 EVERY 1 DAYS
  6. DOXYCYCLINE. [Concomitant]
     Active Substance: DOXYCYCLINE
     Dosage: 2 EVERY 1 DAYS
     Route: 048
  7. REMICADE [Suspect]
     Active Substance: INFLIXIMAB
     Indication: PRODUCT USED FOR UNKNOWN INDICATION
     Route: 042
  8. HYDROMORPHONE/HYDROMORPHONE HYDROCHLORIDE [Concomitant]
     Active Substance: HYDROMORPHONE
     Indication: PAIN
     Route: 048
  9. DICLOFENAC [Concomitant]
     Active Substance: DICLOFENAC
  10. SALBUTAMOL [Concomitant]
     Active Substance: ALBUTEROL
  11. REMICADE [Suspect]
     Active Substance: INFLIXIMAB
     Indication: PRODUCT USED FOR UNKNOWN INDICATION
     Route: 042
  12. NIFEDIPINE. [Concomitant]
     Active Substance: NIFEDIPINE
  13. DILTIAZEM. [Concomitant]
     Active Substance: DILTIAZEM
     Dosage: 2 EVERY 1 DAYS
  14. BUDESONIDE. [Concomitant]
     Active Substance: BUDESONIDE

REACTIONS (6)
  - Drug ineffective [Unknown]
  - Nausea [Not Recovered/Not Resolved]
  - Respiratory tract infection [Not Recovered/Not Resolved]
  - Decreased appetite [Not Recovered/Not Resolved]
  - Renal disorder [Not Recovered/Not Resolved]
  - Weight decreased [Not Recovered/Not Resolved]
